FAERS Safety Report 6698625-6 (Version None)
Quarter: 2010Q2

REPORT INFORMATION
  Report Type: 
  Country: None (occurrence: None)
  Receive Date: 20100427
  Receipt Date: 20100421
  Transmission Date: 20101027
  Serious: Yes (Death)
  Sender: FDA-Public Use
  Company Number: US-PFIZER INC-2009191253

PATIENT
  Sex: Female

DRUGS (7)
  1. REVATIO [Suspect]
     Indication: PULMONARY HYPERTENSION
     Dosage: 20 MG, 3X/DAY
  2. FENTANYL [Concomitant]
  3. PREDNISONE [Concomitant]
  4. INSULIN [Concomitant]
  5. FLOLAN [Concomitant]
  6. REMICADE [Concomitant]
  7. WARFARIN [Concomitant]

REACTIONS (1)
  - DEATH [None]
